FAERS Safety Report 7368823-7 (Version None)
Quarter: 2011Q1

REPORT INFORMATION
  Report Type: 
  Country: None (occurrence: None)
  Receive Date: 20110310
  Receipt Date: 20110304
  Transmission Date: 20110831
  Serious: Yes (Life-Threatening, Hospitalization, Disabling, Other)
  Sender: FDA-Public Use
  Company Number: 2010SP036928

PATIENT
  Age: 27 Year
  Sex: Female
  Weight: 104.3273 kg

DRUGS (3)
  1. METFORMIN HCL [Concomitant]
  2. NUVARING [Suspect]
     Indication: CONTRACEPTION
     Dates: start: 20070301, end: 20080415
  3. NUVARING [Suspect]
     Indication: POLYCYSTIC OVARIES
     Dates: start: 20070301, end: 20080415

REACTIONS (32)
  - MULTIPLE INJURIES [None]
  - MIGRAINE [None]
  - HYPERTENSION [None]
  - LOBAR PNEUMONIA [None]
  - HYDROCEPHALUS [None]
  - BRAIN OEDEMA [None]
  - CONVULSION [None]
  - SUBARACHNOID HAEMORRHAGE [None]
  - PLEURAL EFFUSION [None]
  - HYPERCOAGULATION [None]
  - DYSMENORRHOEA [None]
  - PAPILLOEDEMA [None]
  - HEPATIC STEATOSIS [None]
  - HEADACHE [None]
  - INTRACRANIAL VENOUS SINUS THROMBOSIS [None]
  - NASAL SEPTUM DEVIATION [None]
  - ISCHAEMIC STROKE [None]
  - INTRACRANIAL PRESSURE INCREASED [None]
  - MENTAL STATUS CHANGES [None]
  - VENOUS THROMBOSIS [None]
  - CEREBROVASCULAR ACCIDENT [None]
  - ACUTE RESPIRATORY FAILURE [None]
  - VISION BLURRED [None]
  - SINUSITIS [None]
  - LOSS OF CONSCIOUSNESS [None]
  - VOMITING [None]
  - DISTURBANCE IN ATTENTION [None]
  - FOOT DEFORMITY [None]
  - PNEUMONIA [None]
  - DRUG SCREEN POSITIVE [None]
  - PARTIAL SEIZURES [None]
  - CARDIAC DISORDER [None]
